FAERS Safety Report 10761780 (Version 1)
Quarter: 2015Q1

REPORT INFORMATION
  Report Type: Spontaneous
  Country: VE (occurrence: VE)
  Receive Date: 20150204
  Receipt Date: 20150204
  Transmission Date: 20150721
  Serious: Yes (Other)
  Sender: FDA-Public Use
  Company Number: VE-SHIRE-VE201500758

PATIENT
  Age: 46 Year
  Sex: Male
  Weight: 70 kg

DRUGS (1)
  1. VPRIV [Suspect]
     Active Substance: VELAGLUCERASE ALFA
     Indication: GAUCHER^S DISEASE
     Dosage: 60 IU/KG, 1X/2WKS
     Route: 041

REACTIONS (10)
  - Infusion related reaction [Recovered/Resolved]
  - Malaise [Recovered/Resolved]
  - Arthralgia [Recovered/Resolved]
  - Blood disorder [Recovered/Resolved]
  - Pyrexia [Recovered/Resolved]
  - Rhinitis [Recovered/Resolved]
  - Headache [Recovered/Resolved]
  - Leukopenia [Recovered/Resolved]
  - Product quality issue [Unknown]
  - Myalgia [Recovered/Resolved]

NARRATIVE: CASE EVENT DATE: 2014
